FAERS Safety Report 7634331-9 (Version None)
Quarter: 2011Q3

REPORT INFORMATION
  Report Type: 
  Country: None (occurrence: None)
  Receive Date: 20110725
  Receipt Date: 20101123
  Transmission Date: 20111222
  Serious: No
  Sender: FDA-Public Use
  Company Number: US-MYLANLABS-2010S1021804

PATIENT
  Age: 33 Year
  Sex: Male
  Weight: 48.54 kg

DRUGS (1)
  1. BUSPIRONE HCL [Suspect]
     Indication: TIC
     Route: 048
     Dates: start: 20100101

REACTIONS (1)
  - INCREASED APPETITE [None]
